FAERS Safety Report 7247734-1 (Version None)
Quarter: 2011Q1

REPORT INFORMATION
  Report Type: 
  Country: None (occurrence: None)
  Receive Date: 20110127
  Receipt Date: 20110118
  Transmission Date: 20110831
  Serious: Yes (Death, Other)
  Sender: FDA-Public Use
  Company Number: CA-ELI_LILLY_AND_COMPANY-CA201101004145

PATIENT
  Sex: Male

DRUGS (5)
  1. ZYPREXA [Suspect]
     Dosage: 5 MG, 3/D
     Dates: start: 19980824
  2. ZYPREXA [Suspect]
     Dosage: 10 MG, 2/D
     Dates: start: 19980824
  3. ZYPREXA [Suspect]
     Dosage: 7.5 MG, 3/D
     Dates: start: 19980824
  4. LORAZEPAM [Concomitant]
  5. ZYPREXA [Suspect]
     Dosage: 10 MG, 3/12 HOURS
     Route: 048
     Dates: start: 19981102

REACTIONS (10)
  - TYPE 2 DIABETES MELLITUS [None]
  - BLOOD GLUCOSE INCREASED [None]
  - WEIGHT INCREASED [None]
  - BLOOD CHOLESTEROL INCREASED [None]
  - NEUTROPHIL COUNT INCREASED [None]
  - INCREASED APPETITE [None]
  - MYOCARDIAL INFARCTION [None]
  - WHITE BLOOD CELL COUNT INCREASED [None]
  - CONVULSION [None]
  - BLOOD PRESSURE INCREASED [None]
